FAERS Safety Report 20843781 (Version 1)
Quarter: 2022Q2

REPORT INFORMATION
  Report Type: Spontaneous
  Country: PL (occurrence: PL)
  Receive Date: 20220518
  Receipt Date: 20220518
  Transmission Date: 20220721
  Serious: Yes (Other)
  Sender: FDA-Public Use
  Company Number: None

PATIENT
  Age: 63 Year
  Sex: Male
  Weight: 69 kg

DRUGS (4)
  1. IRINOTECAN HYDROCHLORIDE [Suspect]
     Active Substance: IRINOTECAN HYDROCHLORIDE
     Dosage: 331.2 MG
     Route: 041
     Dates: start: 20211012, end: 20211012
  2. OXALIPLATIN [Suspect]
     Active Substance: OXALIPLATIN
     Dosage: 156.4 MG
     Route: 041
     Dates: start: 20211012, end: 20211012
  3. FLUOROURACIL [Suspect]
     Active Substance: FLUOROURACIL
     Dosage: 736MG
     Route: 040
     Dates: start: 20211012, end: 20211013
  4. FLUOROURACIL [Suspect]
     Active Substance: FLUOROURACIL
     Dosage: 2208 MG (INTRAVENOUS - PUMP)
     Route: 042
     Dates: start: 20211012, end: 20211014

REACTIONS (2)
  - Neutropenia [Recovered/Resolved with Sequelae]
  - Hypokalaemia [Recovered/Resolved with Sequelae]

NARRATIVE: CASE EVENT DATE: 20211026
